FAERS Safety Report 18343623 (Version 1)
Quarter: 2020Q4

REPORT INFORMATION
  Report Type: Spontaneous
  Country: US (occurrence: US)
  Receive Date: 20201005
  Receipt Date: 20201005
  Transmission Date: 20210113
  Serious: Yes (Death)
  Sender: FDA-Public Use
  Company Number: US-PFIZER INC-2020378518

PATIENT
  Age: 4 Year
  Sex: Male

DRUGS (2)
  1. GLUCOSE [Suspect]
     Active Substance: DEXTROSE
     Dosage: 1000 ML
     Route: 042
  2. VASOPRESSIN. [Suspect]
     Active Substance: VASOPRESSIN
     Indication: HAEMOSTASIS
     Dosage: 0.4 ML (8 UNITS; USUAL DOSE RANGE REPORTEDLY 5-20 UNITS)
     Route: 030

REACTIONS (4)
  - Metabolic disorder [Fatal]
  - Water intoxication [Fatal]
  - Brain oedema [Fatal]
  - Overdose [Fatal]
